FAERS Safety Report 6275694-9 (Version None)
Quarter: 2009Q3

REPORT INFORMATION
  Report Type: 
  Country: None (occurrence: None)
  Receive Date: 20090721
  Receipt Date: 20090626
  Transmission Date: 20100115
  Serious: Yes (Death, Hospitalization)
  Sender: FDA-Public Use
  Company Number: PHHO2009AU05300

PATIENT
  Sex: Male
  Weight: 83.5 kg

DRUGS (5)
  1. ZOLEDRONIC ACID [Suspect]
     Indication: NEOPLASM
     Dosage: 4 MG, 3 WEEKLY
     Route: 042
     Dates: start: 20090319, end: 20090413
  2. RAD 666 RAD+TAB [Suspect]
     Indication: NEOPLASM
     Dosage: 5 MG, UNK
     Route: 048
     Dates: start: 20090319, end: 20090413
  3. RAD 666 RAD+TAB [Suspect]
     Dosage: 5 MG DAILY FOR 5 DAYS WITH 2 DAYS OFF
     Route: 048
     Dates: start: 20090409, end: 20090413
  4. LESCOL LES+TAB [Suspect]
     Indication: NEOPLASM
     Dosage: 80 MG, UNK
     Route: 048
     Dates: start: 20090319, end: 20090413
  5. MAXOLON [Concomitant]

REACTIONS (5)
  - DIARRHOEA [None]
  - DYSPNOEA [None]
  - HEPATIC ENZYME INCREASED [None]
  - MALIGNANT NEOPLASM PROGRESSION [None]
  - NAUSEA [None]
